FAERS Safety Report 6163457-4 (Version None)
Quarter: 2009Q2

REPORT INFORMATION
  Report Type: 
  Country: None (occurrence: None)
  Receive Date: 20090422
  Receipt Date: 20090410
  Transmission Date: 20091009
  Serious: Yes (Death)
  Sender: FDA-Public Use
  Company Number: FR-ELI_LILLY_AND_COMPANY-FR200903006962

PATIENT
  Sex: Female
  Weight: 67 kg

DRUGS (13)
  1. DROTRECOGIN ALFA (ACTIVATED) [Suspect]
     Indication: SEPSIS
     Dosage: UNK, UNKNOWN
     Route: 042
     Dates: start: 20071231, end: 20080104
  2. HEPARIN [Concomitant]
  3. HYPNOVEL [Concomitant]
     Indication: SEDATION
     Dates: start: 20071231
  4. SUFENTA PRESERVATIVE FREE [Concomitant]
     Indication: SEDATION
     Dates: start: 20071231
  5. GLUCOR [Concomitant]
  6. GLIBENCLAMIDE [Concomitant]
  7. METFORMIN HCL [Concomitant]
  8. KARDEGIC [Concomitant]
  9. PRAVASTATIN [Concomitant]
  10. NORADRENALINE [Concomitant]
     Indication: SHOCK
  11. ROCEPHIN [Concomitant]
  12. TAVANIC [Concomitant]
     Indication: SHOCK
  13. MORPHINE                           /00036301/ [Concomitant]

REACTIONS (1)
  - HAEMORRHAGIC STROKE [None]
